FAERS Safety Report 23210621 (Version 1)
Quarter: 2023Q4

REPORT INFORMATION
  Report Type: Report from Study
  Country: CA (occurrence: CA)
  Receive Date: 20231121
  Receipt Date: 20231121
  Transmission Date: 20240110
  Serious: Yes (Other)
  Sender: FDA-Public Use
  Company Number: CA-TAKEDA-2023TUS019387

PATIENT
  Sex: Female
  Weight: 100 kg

DRUGS (4)
  1. VEDOLIZUMAB [Suspect]
     Active Substance: VEDOLIZUMAB
     Indication: Crohn^s disease
     Dosage: 300 MILLIGRAM
     Route: 042
     Dates: start: 20230110
  2. VEDOLIZUMAB [Suspect]
     Active Substance: VEDOLIZUMAB
     Dosage: 300 MILLIGRAM
     Route: 042
  3. VEDOLIZUMAB [Suspect]
     Active Substance: VEDOLIZUMAB
     Dosage: 300 MILLIGRAM
     Route: 042
     Dates: end: 20231003
  4. MESALAMINE [Concomitant]
     Active Substance: MESALAMINE
     Dosage: 2400 MILLIGRAM
     Dates: start: 2018

REACTIONS (6)
  - Crohn^s disease [Not Recovered/Not Resolved]
  - Abdominal pain upper [Not Recovered/Not Resolved]
  - Drug ineffective [Recovered/Resolved]
  - Proctalgia [Unknown]
  - Mucous stools [Unknown]
  - Flatulence [Not Recovered/Not Resolved]
